FAERS Safety Report 25995113 (Version 1)
Quarter: 2025Q4

REPORT INFORMATION
  Report Type: Spontaneous
  Country: EU (occurrence: EU)
  Receive Date: 20251104
  Receipt Date: 20251104
  Transmission Date: 20260117
  Serious: Yes (Life-Threatening, Hospitalization, Other)
  Sender: BOEHRINGER INGELHEIM
  Company Number: None

PATIENT
  Age: 59 Year
  Sex: Female
  Weight: 100 kg

DRUGS (8)
  1. EMPAGLIFLOZIN [Suspect]
     Active Substance: EMPAGLIFLOZIN
     Indication: Type 2 diabetes mellitus
     Dates: start: 20250807, end: 20251019
  2. PANTOPRAZOLE [Concomitant]
     Active Substance: PANTOPRAZOLE
     Indication: Product used for unknown indication
     Dosage: MAAGSAPRESISTENTE TABLET
  3. GLICLAZIDE TABLET MGA 30MG / Brand name not specified [Concomitant]
     Indication: Product used for unknown indication
     Dosage: TABLET MET GEREGULEERDE AFGIFTE
  4. METFORMINE TABLET   850MG / GLUCOPHAGE TABLET FILMOMHULD 850MG [Concomitant]
     Indication: Product used for unknown indication
     Dosage: 1000 MG
  5. SEMAGLUTIDE TABLET 14MG / Brand name not specified [Concomitant]
     Indication: Product used for unknown indication
  6. NIFEDIPINE [Concomitant]
     Active Substance: NIFEDIPINE
     Indication: Product used for unknown indication
     Dosage: TABLET MET GEREGULEERDE AFGIFTE,
  7. PRASUGREL TABLET 10MG / Brand name not specified [Concomitant]
     Indication: Product used for unknown indication
  8. ATORVASTATIN [Concomitant]
     Active Substance: ATORVASTATIN
     Indication: Product used for unknown indication

REACTIONS (2)
  - Ketoacidosis [Recovered/Resolved]
  - Hyperglycaemia [Recovered/Resolved]
